FAERS Safety Report 19878440 (Version 1)
Quarter: 2021Q3

REPORT INFORMATION
  Report Type: Spontaneous
  Country: US (occurrence: US)
  Receive Date: 20210924
  Receipt Date: 20210924
  Transmission Date: 20211014
  Serious: Yes (Disabling, Other)
  Sender: FDA-Public Use
  Company Number: None

PATIENT
  Age: 44 Year
  Sex: Male
  Weight: 81 kg

DRUGS (3)
  1. OMEGA 3 [Concomitant]
     Active Substance: OMEGA-3 FATTY ACIDS
  2. DOXYCYCLINE MONOHYDRATE ( PAR 727 ON PILL ) [Suspect]
     Active Substance: DOXYCYCLINE
     Indication: BACTERIAL INFECTION
     Route: 048
     Dates: start: 20210909, end: 20210921
  3. VITAMIN C [Concomitant]
     Active Substance: ASCORBIC ACID

REACTIONS (6)
  - Manufacturing process control procedure issue [None]
  - Abdominal pain upper [None]
  - Tinnitus [None]
  - Headache [None]
  - Product substitution issue [None]
  - Visual impairment [None]

NARRATIVE: CASE EVENT DATE: 20210909
